FAERS Safety Report 8217610-6 (Version None)
Quarter: 2012Q1

REPORT INFORMATION
  Report Type: 
  Country: None (occurrence: None)
  Receive Date: 20120319
  Receipt Date: 20120319
  Transmission Date: 20120608
  Serious: Yes (Life-Threatening, Hospitalization)
  Sender: FDA-Public Use
  Company Number: None

PATIENT
  Age: 49 Year
  Sex: Female
  Weight: 79.378 kg

DRUGS (1)
  1. DEXILANT [Suspect]
     Indication: GASTROOESOPHAGEAL REFLUX DISEASE
     Dates: start: 20120221, end: 20120315

REACTIONS (8)
  - TREMOR [None]
  - LIP OEDEMA [None]
  - SWOLLEN TONGUE [None]
  - SWELLING FACE [None]
  - FALL [None]
  - CONVULSION [None]
  - VISION BLURRED [None]
  - DIZZINESS [None]
